FAERS Safety Report 19967774 (Version 1)
Quarter: 2021Q4

REPORT INFORMATION
  Report Type: Spontaneous
  Country: DE (occurrence: DE)
  Receive Date: 20211019
  Receipt Date: 20211019
  Transmission Date: 20220303
  Serious: Yes (Other)
  Sender: FDA-Public Use
  Company Number: DE-PROCTER+GAMBLE-PH21007470

PATIENT
  Age: 65 Year
  Sex: Male
  Weight: 90 kg

DRUGS (13)
  1. AMLODIPINE [Suspect]
     Active Substance: AMLODIPINE BESYLATE
     Indication: Product used for unknown indication
     Dosage: 25 DOSAGE FORM, ONCE A DAY (25 TABLET, 1 ONLY)
     Route: 048
     Dates: start: 20210901, end: 20210901
  2. CANDESARTAN [Suspect]
     Active Substance: CANDESARTAN
     Indication: Product used for unknown indication
     Dosage: 56 DOSAGE FORM, ONCE A DAY (56 TABLET, 1 ONLY)
     Route: 048
     Dates: start: 20210901, end: 20210901
  3. SIMVASTATIN [Suspect]
     Active Substance: SIMVASTATIN
     Indication: Product used for unknown indication
     Dosage: 175 DOSAGE FORM, ONCE A DAY (175 TABLET, 1 ONLY0
     Route: 048
     Dates: start: 20210901, end: 20210901
  4. ASPIRIN [Suspect]
     Active Substance: ASPIRIN
     Indication: Product used for unknown indication
     Dosage: 160 DOSAGE FORM, ONCE A DAY (160 TABLET, 1 ONLY)
     Route: 048
     Dates: start: 20210901, end: 20210901
  5. FOLIC ACID [Suspect]
     Active Substance: FOLIC ACID
     Indication: Product used for unknown indication
     Dosage: 110 DOSAGE FORM, ONCE A DAY (110 TABLET, 1 ONLY)
     Route: 048
     Dates: start: 20210901, end: 20210901
  6. DAPAGLIFLOZIN [Suspect]
     Active Substance: DAPAGLIFLOZIN
     Indication: Product used for unknown indication
     Dosage: 28 DOSAGE FORM, ONCE A DAY (28 TABLET, 1 ONLY)
     Route: 048
     Dates: start: 20210901, end: 20210901
  7. HYDROCHLOROTHIAZIDE [Suspect]
     Active Substance: HYDROCHLOROTHIAZIDE
     Indication: Product used for unknown indication
     Dosage: 90 DOSAGE FORM, ONCE A DAY (90 TABLET, 1 ONLY)
     Route: 048
     Dates: start: 20210901, end: 20210901
  8. METFORMIN HYDROCHLORIDE\SAXAGLIPTIN [Suspect]
     Active Substance: METFORMIN HYDROCHLORIDE\SAXAGLIPTIN
     Indication: Product used for unknown indication
     Dosage: 7 DOSAGE FORM, ONCE A DAY (7 TABLET, 1 ONLY)
     Route: 048
     Dates: start: 20210901, end: 20210901
  9. PANTOZOL [Suspect]
     Active Substance: PANTOPRAZOLE SODIUM
     Indication: Product used for unknown indication
     Dosage: 75 DOSAGE FORM, ONCE A DAY (75 TABLET, 1 ONLY)
     Route: 048
     Dates: start: 20210901, end: 20210901
  10. ACETAMINOPHEN [Suspect]
     Active Substance: ACETAMINOPHEN
     Indication: Product used for unknown indication
     Dosage: UNK
     Route: 065
     Dates: start: 20210901, end: 20210901
  11. PREDNISOLONE [Suspect]
     Active Substance: PREDNISOLONE
     Indication: Product used for unknown indication
     Dosage: 80 DOSAGE FORM, ONCE A DAY (80 TABLET, 1 ONLY)
     Route: 048
     Dates: start: 20210901, end: 20210901
  12. CHOLECALCIFEROL [Suspect]
     Active Substance: CHOLECALCIFEROL
     Indication: Product used for unknown indication
     Dosage: 52 DOSAGE FORM, ONCE A DAY (52 TABLET, 1 ONLY)
     Route: 048
     Dates: start: 20210901, end: 20210901
  13. ACETAMINOPHEN\CAFFEINE [Suspect]
     Active Substance: ACETAMINOPHEN\CAFFEINE
     Indication: Product used for unknown indication
     Dosage: 20 DOSAGE FORM, ONCE A DAY (20 TABLET, 1 ONLY)
     Route: 048
     Dates: start: 20210901, end: 20210901

REACTIONS (8)
  - Suicide attempt [Recovered/Resolved]
  - Intentional self-injury [Recovered/Resolved]
  - Tachycardia [Recovered/Resolved]
  - Blood glucose increased [Recovered/Resolved]
  - Somnolence [Recovered/Resolved]
  - Heart rate increased [Recovered/Resolved]
  - Vomiting [Recovered/Resolved]
  - Intentional overdose [Unknown]

NARRATIVE: CASE EVENT DATE: 20210901
